FAERS Safety Report 8854677 (Version 1)
Quarter: 2012Q4

REPORT INFORMATION
  Report Type: 
  Country: UA (occurrence: UA)
  Receive Date: 20121023
  Receipt Date: 20121023
  Transmission Date: 20130627
  Serious: Yes (Life-Threatening, Other)
  Sender: FDA-Public Use
  Company Number: UA-PFIZER INC-2012262391

PATIENT
  Age: 62 Year
  Sex: Male

DRUGS (4)
  1. CORDARONE [Suspect]
     Indication: ATRIAL FIBRILLATION
     Dosage: 400 mg, daily
     Route: 048
  2. CORDARONE [Suspect]
     Indication: VENTRICULAR ARRHYTHMIA
     Dosage: 800 mg, daily
     Route: 048
     Dates: start: 201210, end: 20121012
  3. CORDARONE [Suspect]
     Indication: CORONARY ARTERY DISEASE
  4. CORDARONE [Suspect]
     Indication: ANGINA PECTORIS

REACTIONS (4)
  - Electrocardiogram QT prolonged [Recovered/Resolved]
  - Ventricular tachycardia [Recovered/Resolved]
  - Ventricular dysfunction [Unknown]
  - Heart rate decreased [Unknown]
